FAERS Safety Report 9642678 (Version 1)
Quarter: 2013Q4

REPORT INFORMATION
  Report Type: Spontaneous
  Country: US (occurrence: US)
  Receive Date: 20131024
  Receipt Date: 20131024
  Transmission Date: 20140711
  Serious: No
  Sender: FDA-Public Use
  Company Number: US-PFIZER INC-2013299751

PATIENT
  Age: 31 Year
  Sex: Female
  Weight: 68.93 kg

DRUGS (3)
  1. ADVIL [Suspect]
     Indication: BACK PAIN
     Dosage: 600MG IN THE MORNING (THREE TABLETS OF 200MG) AND 400MG AT NIGHT (TWO TABLETS OF 200MG)
     Route: 048
     Dates: start: 20131014
  2. ADVIL [Suspect]
     Dosage: UNK
     Route: 048
     Dates: end: 20131017
  3. DIFFERIN [Concomitant]
     Indication: ACNE
     Dosage: UNK
     Dates: start: 201308

REACTIONS (4)
  - Inappropriate schedule of drug administration [Unknown]
  - Burning sensation [Not Recovered/Not Resolved]
  - Rash [Not Recovered/Not Resolved]
  - Erythema [Not Recovered/Not Resolved]
